FAERS Safety Report 4677531-2 (Version None)
Quarter: 2005Q2

REPORT INFORMATION
  Report Type: 
  Country: None (occurrence: None)
  Receive Date: 20050526
  Receipt Date: 20050526
  Transmission Date: 20051028
  Serious: No
  Sender: FDA-Public Use
  Company Number: None

PATIENT
  Sex: Male
  Weight: 111 kg

DRUGS (14)
  1. FLUVASTATIN   40MG [Suspect]
     Indication: HYPERLIPIDAEMIA
     Dosage: 40MG  QDAY   ORAL
     Route: 048
     Dates: start: 20050330, end: 20050524
  2. SYNTHROID [Concomitant]
  3. ALLOPURINOL [Concomitant]
  4. THEOCHRON [Concomitant]
  5. METOPROLOL [Concomitant]
  6. LASIX [Concomitant]
  7. LISINOPRIL [Concomitant]
  8. VICODIN [Concomitant]
  9. CLONIDINE [Concomitant]
  10. PIROXICAM [Concomitant]
  11. TRICOR [Concomitant]
  12. GLIPIZIDE [Concomitant]
  13. AEROBID [Concomitant]
  14. COMBIVENT MDI [Concomitant]

REACTIONS (2)
  - BLOOD CREATINE PHOSPHOKINASE INCREASED [None]
  - MUSCULAR WEAKNESS [None]
